FAERS Safety Report 8470170-7 (Version None)
Quarter: 2012Q2

REPORT INFORMATION
  Report Type: 
  Country: None (occurrence: None)
  Receive Date: 20120621
  Receipt Date: 20120621
  Transmission Date: 20120825
  Serious: Yes (Hospitalization, Other)
  Sender: FDA-Public Use
  Company Number: None

PATIENT
  Age: 30 Year
  Sex: Female
  Weight: 55.3388 kg

DRUGS (1)
  1. MIRENA [Suspect]

REACTIONS (7)
  - ABDOMINAL PAIN [None]
  - NAUSEA [None]
  - BREAST PAIN [None]
  - OVARIAN CYST [None]
  - ABDOMINAL DISTENSION [None]
  - VOMITING [None]
  - MALAISE [None]
